FAERS Safety Report 4506367-8 (Version None)
Quarter: 2004Q4

REPORT INFORMATION
  Report Type: 
  Country: None (occurrence: None)
  Receive Date: 20041025
  Receipt Date: 20031120
  Transmission Date: 20050328
  Serious: Yes (Hospitalization, Other)
  Sender: FDA-Public Use
  Company Number: US-JNJFOC-20030604142

PATIENT
  Age: 53 Year
  Sex: Female
  Weight: 125.1928 kg

DRUGS (13)
  1. REMICADE [Suspect]
     Indication: RHEUMATOID ARTHRITIS
     Dosage: 500 MG, 1IN 1 TOTAL
     Dates: start: 20030422
  2. PREDNISONE [Concomitant]
  3. METHOTREXATE [Concomitant]
  4. FOLIC ACID [Concomitant]
  5. VICODIN [Concomitant]
  6. IBUPROFEN [Concomitant]
  7. GLUCOPHAGE [Concomitant]
  8. PRINIZIDE (PRINZIDE) [Concomitant]
  9. AVANDIA [Concomitant]
  10. FLUOXETINE [Concomitant]
  11. ALPHAGAN [Concomitant]
  12. LEVOBUNOLOL (LEVOBUNOLOL) [Concomitant]
  13. XALATAN [Concomitant]

REACTIONS (1)
  - PNEUMOCYSTIS CARINII PNEUMONIA [None]
